FAERS Safety Report 12687777 (Version 1)
Quarter: 2016Q3

REPORT INFORMATION
  Report Type: Spontaneous
  Country: US (occurrence: US)
  Receive Date: 20160825
  Receipt Date: 20160825
  Transmission Date: 20161109
  Serious: No
  Sender: FDA-Public Use
  Company Number: US-PFIZER INC-2016398410

PATIENT
  Age: 43 Year
  Sex: Female

DRUGS (1)
  1. SOLU-MEDROL [Suspect]
     Active Substance: METHYLPREDNISOLONE SODIUM SUCCINATE
     Dosage: UNK

REACTIONS (8)
  - Drug ineffective [Unknown]
  - Anxiety [Unknown]
  - Panic attack [Unknown]
  - Blood glucose increased [Unknown]
  - Blood pressure increased [Unknown]
  - Headache [Unknown]
  - Condition aggravated [Unknown]
  - Affect lability [Unknown]
